FAERS Safety Report 21902868 (Version 2)
Quarter: 2024Q4

REPORT INFORMATION
  Report Type: Report from Study
  Country: GB (occurrence: GB)
  Receive Date: 20230124
  Receipt Date: 20241112
  Transmission Date: 20250114
  Serious: Yes (Death, Other)
  Sender: NOVARTIS
  Company Number: GB-002147023-NVSC2023GB014826

PATIENT

DRUGS (1)
  1. PLUVICTO [Suspect]
     Active Substance: LUTETIUM LU-177 VIPIVOTIDE TETRAXETAN
     Indication: Hormone-refractory prostate cancer
     Dosage: UNK, (CYCLE 01)
     Route: 042
     Dates: start: 20221209, end: 20221209

REACTIONS (2)
  - Death [Fatal]
  - Nephropathy toxic [Unknown]

NARRATIVE: CASE EVENT DATE: 20220101
